FAERS Safety Report 5099961-X (Version None)
Quarter: 2006Q3

REPORT INFORMATION
  Report Type: 
  Country: None (occurrence: None)
  Receive Date: 20060908
  Receipt Date: 20060613
  Transmission Date: 20061208
  Serious: Yes (Hospitalization)
  Sender: FDA-Public Use
  Company Number: US-AMGEN-STX182777

PATIENT
  Sex: Female

DRUGS (15)
  1. ENBREL [Suspect]
     Indication: RHEUMATOID ARTHRITIS
     Route: 058
     Dates: start: 19990401, end: 20060601
  2. PREDNISONE TAB [Concomitant]
  3. SYNTHROID [Concomitant]
  4. PROTONIX [Concomitant]
  5. ZETIA [Concomitant]
  6. ASPIRIN [Concomitant]
  7. NORVASC [Concomitant]
  8. TYLENOL [Concomitant]
  9. CALCIUM GLUCONATE [Concomitant]
  10. ISORDIL [Concomitant]
  11. COREG [Concomitant]
  12. LOMOTIL [Concomitant]
  13. PREMPRO 14/14 [Concomitant]
  14. MULTIVITAMIN [Concomitant]
  15. METHOTREXATE [Concomitant]
     Indication: RHEUMATOID ARTHRITIS

REACTIONS (7)
  - ACUTE CORONARY SYNDROME [None]
  - ANGINA UNSTABLE [None]
  - CARDIAC OPERATION [None]
  - CHEST PAIN [None]
  - MYOCARDIAL INFARCTION [None]
  - NECK PAIN [None]
  - TACHYCARDIA [None]
